FAERS Safety Report 6435778-9 (Version None)
Quarter: 2009Q4

REPORT INFORMATION
  Report Type: 
  Country: None (occurrence: None)
  Receive Date: 20091110
  Receipt Date: 20080530
  Transmission Date: 20100525
  Serious: No
  Sender: FDA-Public Use
  Company Number: AECAN200800126

PATIENT
  Age: 4 Year
  Sex: Female

DRUGS (1)
  1. GAMUNEX [Suspect]
     Indication: KAWASAKI'S DISEASE
     Dosage: 4 G/KG,IV
     Route: 042

REACTIONS (1)
  - HAEMOLYSIS [None]
